FAERS Safety Report 18468447 (Version 2)
Quarter: 2020Q4

REPORT INFORMATION
  Report Type: Report from Study
  Country: ES (occurrence: ES)
  Receive Date: 20201105
  Receipt Date: 20201113
  Transmission Date: 20210114
  Serious: Yes (Other)
  Sender: FDA-Public Use
  Company Number: ES-UCBSA-2020043818

PATIENT
  Age: 55 Year
  Sex: Male

DRUGS (5)
  1. BRIVARACETAM [Suspect]
     Active Substance: BRIVARACETAM
     Indication: EPILEPSY
     Dosage: 200 MG-100 MG-100 MG
     Dates: start: 201908
  2. PERAMPANEL [Concomitant]
     Active Substance: PERAMPANEL
     Indication: EPILEPSY
     Dosage: 8 MILLIGRAM, UNK
  3. VALPROATE [Concomitant]
     Active Substance: VALPROIC ACID
     Indication: EPILEPSY
     Dosage: 800-800-500 MG
  4. CLONAZEPAM. [Concomitant]
     Active Substance: CLONAZEPAM
     Indication: EPILEPSY
     Dosage: 2 MILLIGRAM, UNK
  5. CARBAMAZEPINE. [Concomitant]
     Active Substance: CARBAMAZEPINE
     Indication: PAIN
     Dosage: 200 MILLIGRAM, 3X/DAY (TID)

REACTIONS (9)
  - Trigeminal nerve disorder [Unknown]
  - Ophthalmic herpes zoster [Recovered/Resolved]
  - Somnolence [Unknown]
  - Bradyphrenia [Unknown]
  - Facial pain [Not Recovered/Not Resolved]
  - Overdose [Unknown]
  - Post herpetic neuralgia [Recovered/Resolved]
  - Loss of personal independence in daily activities [Unknown]
  - Product use issue [Unknown]

NARRATIVE: CASE EVENT DATE: 201908
